FAERS Safety Report 7704107-2 (Version None)
Quarter: 2011Q3

REPORT INFORMATION
  Report Type: 
  Country: None (occurrence: None)
  Receive Date: 20110818
  Receipt Date: 20110804
  Transmission Date: 20111222
  Serious: No
  Sender: FDA-Public Use
  Company Number: 2011SP002574

PATIENT
  Sex: Female

DRUGS (2)
  1. LATUDA [Suspect]
     Indication: SCHIZOAFFECTIVE DISORDER
     Dosage: 80 MG;QD;ORAL
     Route: 048
     Dates: start: 20110523, end: 20110725
  2. PROZAC [Concomitant]

REACTIONS (3)
  - INCOHERENT [None]
  - CYSTITIS [None]
  - CATATONIA [None]
